FAERS Safety Report 7669533-9 (Version None)
Quarter: 2011Q3

REPORT INFORMATION
  Report Type: 
  Country: None (occurrence: None)
  Receive Date: 20110808
  Receipt Date: 20110802
  Transmission Date: 20111222
  Serious: Yes (Other)
  Sender: FDA-Public Use
  Company Number: JP-MERCK-1108USA00489

PATIENT
  Age: 62 Year
  Sex: Male

DRUGS (6)
  1. BASEN OD [Concomitant]
     Route: 065
  2. MAGMITT [Concomitant]
     Route: 065
  3. JANUVIA [Suspect]
     Indication: TYPE 2 DIABETES MELLITUS
     Route: 048
     Dates: start: 20110426, end: 20110601
  4. AMARYL [Concomitant]
     Route: 065
  5. METFORMIN HCL [Concomitant]
     Route: 065
  6. LENIMEC [Concomitant]
     Route: 065

REACTIONS (1)
  - DIPLOPIA [None]
